FAERS Safety Report 14973905 (Version 1)
Quarter: 2018Q2

REPORT INFORMATION
  Report Type: Spontaneous
  Country: SE (occurrence: SE)
  Receive Date: 20180605
  Receipt Date: 20180605
  Transmission Date: 20180711
  Serious: Yes (Hospitalization)
  Sender: FDA-Public Use
  Company Number: SE-JNJFOC-20180536755

PATIENT
  Age: 35 Year
  Sex: Female
  Weight: 61 kg

DRUGS (1)
  1. RISPERDAL [Suspect]
     Active Substance: RISPERIDONE
     Indication: DEPRESSED MOOD
     Route: 065
     Dates: start: 20150101, end: 20180401

REACTIONS (7)
  - Product use in unapproved indication [Unknown]
  - Infertility [Not Recovered/Not Resolved]
  - Lactation disorder [Not Recovered/Not Resolved]
  - Maternal exposure during pregnancy [Unknown]
  - Menstrual disorder [Not Recovered/Not Resolved]
  - Abortion spontaneous [Not Recovered/Not Resolved]
  - Off label use [Unknown]

NARRATIVE: CASE EVENT DATE: 2015
